FAERS Safety Report 7401904-8 (Version None)
Quarter: 2011Q2

REPORT INFORMATION
  Report Type: 
  Country: None (occurrence: None)
  Receive Date: 20110408
  Receipt Date: 20110330
  Transmission Date: 20111010
  Serious: Yes (Other)
  Sender: FDA-Public Use
  Company Number: US-JNJFOC-20110400456

PATIENT
  Sex: Female
  Weight: 74.84 kg

DRUGS (1)
  1. DURAGESIC [Suspect]
     Indication: ARTHRITIS
     Route: 062

REACTIONS (1)
  - NERVE INJURY [None]
